FAERS Safety Report 16565130 (Version 1)
Quarter: 2019Q3

REPORT INFORMATION
  Report Type: Other
  Country: DK (occurrence: DK)
  Receive Date: 20190712
  Receipt Date: 20190712
  Transmission Date: 20191004
  Serious: Yes (Disabling)
  Sender: FDA-Public Use
  Company Number: DK-GLENMARK PHARMACEUTICALS-2019GMK042061

PATIENT

DRUGS (3)
  1. AMIKAN [Suspect]
     Active Substance: AMIKACIN SULFATE
     Indication: TUBERCULOSIS
     Dosage: DOSIS: 1750 MG MAN, ONS, FREDAG. STYRKE: 250MG/ML
     Route: 042
     Dates: start: 20180430, end: 201812
  2. LINEZOLID ?GLENMARK? [Suspect]
     Active Substance: LINEZOLID
     Indication: TUBERCULOSIS
     Dosage: DOSIS: 2 TABLETTER OM DAGEN. STYRKE: 600 MG
     Route: 048
     Dates: start: 20180430
  3. CLARITHROMYCIN ACTAVIS             /00984603/ [Concomitant]
     Active Substance: CLARITHROMYCIN CITRATE
     Indication: TUBERCULOSIS
     Dosage: 500 MG, OD (STYRKE: 500 MG)
     Route: 048
     Dates: start: 20180430

REACTIONS (4)
  - Toxicity to various agents [Not Recovered/Not Resolved]
  - Visual impairment [Not Recovered/Not Resolved]
  - Macular degeneration [Not Recovered/Not Resolved]
  - Optic neuropathy [Not Recovered/Not Resolved]

NARRATIVE: CASE EVENT DATE: 201903
